FAERS Safety Report 7571224-X (Version None)
Quarter: 2011Q2

REPORT INFORMATION
  Report Type: 
  Country: None (occurrence: None)
  Receive Date: 20110624
  Receipt Date: 20110112
  Transmission Date: 20111010
  Serious: Yes (Death)
  Sender: FDA-Public Use
  Company Number: A0905965A

PATIENT
  Sex: Female
  Weight: 61.4 kg

DRUGS (2)
  1. TYKERB [Suspect]
     Dosage: 1250MG PER DAY
     Route: 048
     Dates: start: 20101218
  2. HERCEPTIN [Concomitant]
     Route: 065

REACTIONS (4)
  - HYPOAESTHESIA [None]
  - DIARRHOEA [None]
  - PARAESTHESIA [None]
  - DEATH [None]
